FAERS Safety Report 6046436-7 (Version None)
Quarter: 2009Q1

REPORT INFORMATION
  Report Type: 
  Country: None (occurrence: None)
  Receive Date: 20090122
  Receipt Date: 20090112
  Transmission Date: 20090719
  Serious: Yes (Life-Threatening, Hospitalization)
  Sender: FDA-Public Use
  Company Number: ES-WYE-H07409308

PATIENT
  Age: 74 Year
  Sex: Female

DRUGS (4)
  1. TRANGOREX [Suspect]
     Indication: ATRIAL FIBRILLATION
     Dosage: UNSPECIFIED
     Route: 042
  2. AMIODARONE HCL [Suspect]
     Indication: ATRIAL FIBRILLATION
     Dosage: UNSPECIFIED
     Route: 048
  3. DIGOXIN [Concomitant]
     Indication: ATRIAL FIBRILLATION
     Route: 042
     Dates: start: 20081207, end: 20081207
  4. SINTROM [Concomitant]
     Indication: ATRIAL FIBRILLATION
     Dosage: UNSPECIFIED
     Route: 048

REACTIONS (3)
  - ANAPHYLACTIC SHOCK [None]
  - CEREBROVASCULAR ACCIDENT [None]
  - NONSPECIFIC REACTION [None]
